FAERS Safety Report 6369059-9 (Version None)
Quarter: 2009Q3

REPORT INFORMATION
  Report Type: 
  Country: None (occurrence: None)
  Receive Date: 20090922
  Receipt Date: 20090911
  Transmission Date: 20100115
  Serious: Yes (Other)
  Sender: FDA-Public Use
  Company Number: PHEH2009US10858

PATIENT
  Sex: Female

DRUGS (1)
  1. VIVELLE-DOT [Suspect]
     Dosage: 0.1 MG, UNK
     Dates: start: 20090201

REACTIONS (6)
  - BLOOD OESTROGEN INCREASED [None]
  - BLOOD PRESSURE INCREASED [None]
  - BREAST TENDERNESS [None]
  - DIZZINESS [None]
  - GALLBLADDER DISORDER [None]
  - PAIN IN EXTREMITY [None]
